FAERS Safety Report 26075498 (Version 1)
Quarter: 2025Q4

REPORT INFORMATION
  Report Type: Spontaneous
  Country: US (occurrence: None)
  Receive Date: 20251120
  Receipt Date: 20251120
  Transmission Date: 20260117
  Serious: Yes (Hospitalization)
  Sender: FDA-CTU
  Company Number: None

PATIENT
  Sex: Female

DRUGS (1)
  1. FORTEO [Suspect]
     Active Substance: TERIPARATIDE
     Indication: Bone density abnormal
     Dosage: FREQUENCY : DAILY;?
     Route: 058
     Dates: start: 20251008

REACTIONS (1)
  - Pancreatitis [None]
